FAERS Safety Report 4279988-8 (Version None)
Quarter: 2004Q1

REPORT INFORMATION
  Report Type: 
  Country: None (occurrence: None)
  Receive Date: 20040126
  Receipt Date: 20040121
  Transmission Date: 20041129
  Serious: Yes (Hospitalization)
  Sender: FDA-Public Use
  Company Number: 200410238GDS

PATIENT
  Age: 71 Year
  Sex: Female

DRUGS (2)
  1. ASPIRIN [Suspect]
     Indication: INFLUENZA
     Dosage: 500 MG, BID, ORAL
     Route: 048
     Dates: start: 20040106, end: 20040108
  2. AUGMENTIN '125' [Suspect]
     Indication: INFLUENZA
     Dosage: 1 G, TOTAL DAILY, ORAL
     Route: 048
     Dates: start: 20040106, end: 20040107

REACTIONS (1)
  - PALPABLE PURPURA [None]
